FAERS Safety Report 9335689 (Version 4)
Quarter: 2014Q1

REPORT INFORMATION
  Report Type: Report from Study
  Country: US (occurrence: US)
  Receive Date: 20130605
  Receipt Date: 20140224
  Transmission Date: 20141002
  Serious: Yes (Hospitalization)
  Sender: FDA-Public Use
  Company Number: US-ROCHE-1221711

PATIENT
  Age: 54 Year
  Sex: Male
  Weight: 112 kg

DRUGS (36)
  1. MEHD7945A (DL11F/HER3-EGFR DAF) [Suspect]
     Indication: SQUAMOUS CELL CARCINOMA
     Dosage: LAST DOSE PRIOR TO RESPIRATORY FAILURE - 29/APR/2013
     Route: 042
     Dates: start: 20130429, end: 20130429
  2. PREVACID [Concomitant]
     Indication: GASTROOESOPHAGEAL REFLUX DISEASE
     Route: 048
  3. PREVACID [Concomitant]
     Indication: GASTROOESOPHAGEAL REFLUX DISEASE
  4. SYNTHROID [Concomitant]
     Indication: HYPOTHYROIDISM
     Route: 048
  5. ATIVAN [Concomitant]
     Indication: ANXIETY
     Route: 048
  6. NAPROSYN [Concomitant]
     Indication: NECK PAIN
     Route: 048
  7. TESTOSTERONE CYPIONATE [Concomitant]
     Indication: BLOOD TESTOSTERONE DECREASED
     Route: 030
  8. STANNOUS FLUORIDE [Concomitant]
     Indication: PROPHYLAXIS
     Route: 048
  9. CARDIZEM [Concomitant]
     Indication: ATRIAL FIBRILLATION
     Route: 042
     Dates: start: 20130503, end: 20130504
  10. CARDIZEM [Concomitant]
     Route: 042
     Dates: start: 20130503, end: 20130503
  11. CARDIZEM [Concomitant]
     Route: 042
     Dates: start: 20130503, end: 20130503
  12. CARDIZEM [Concomitant]
     Route: 042
     Dates: start: 20130503, end: 20130504
  13. CARDIZEM [Concomitant]
     Route: 048
     Dates: start: 20130521
  14. SALINE SOLUTION [Concomitant]
     Indication: DEHYDRATION
     Route: 042
     Dates: start: 20130503, end: 20130521
  15. SALINE SOLUTION [Concomitant]
     Indication: RENAL FAILURE
  16. ASPIRIN [Concomitant]
     Indication: CARDIOVASCULAR EVENT PROPHYLAXIS
     Route: 048
     Dates: start: 20130521
  17. CALMOSEPTINE (UNITED STATES) [Concomitant]
     Route: 061
     Dates: start: 20130521
  18. DOXYCYCLINE [Concomitant]
     Indication: OSTEOMYELITIS
     Route: 048
     Dates: start: 20130503, end: 20130520
  19. LORTAB [Concomitant]
     Indication: PAIN
     Route: 048
  20. DIOVAN [Concomitant]
     Indication: HYPERTENSION
     Route: 048
     Dates: start: 20130504
  21. CRESTOR [Concomitant]
     Indication: HYPERLIPIDAEMIA
     Route: 048
     Dates: start: 20130504
  22. ZANTAC [Concomitant]
     Indication: GASTROOESOPHAGEAL REFLUX DISEASE
     Route: 048
     Dates: start: 20130504
  23. PHENERGAN [Concomitant]
     Indication: PROPHYLAXIS OF NAUSEA AND VOMITING
     Route: 048
     Dates: start: 20130504
  24. DEXAMETHASONE [Concomitant]
     Indication: LUNG INFILTRATION
     Route: 048
     Dates: start: 20130504
  25. NITROSTAT [Concomitant]
     Indication: ANGINA PECTORIS
     Route: 048
     Dates: start: 20130504
  26. ZOFRAN [Concomitant]
     Indication: NAUSEA
     Route: 048
     Dates: start: 20130504
  27. ACETAMINOPHEN [Concomitant]
     Indication: PAIN MANAGEMENT
     Route: 048
     Dates: start: 20130504
  28. ESOMEPRAZOLE [Concomitant]
     Indication: GASTROOESOPHAGEAL REFLUX DISEASE
     Route: 048
     Dates: start: 20130504
  29. LOVENOX [Concomitant]
     Indication: THROMBOSIS PROPHYLAXIS
     Route: 058
     Dates: start: 20130504
  30. FENTANYL [Concomitant]
     Indication: PAIN MANAGEMENT
     Route: 042
     Dates: start: 20130504
  31. CLONIDINE [Concomitant]
     Indication: HYPERTENSION
     Route: 048
     Dates: start: 20130504
  32. VENOFER [Concomitant]
     Indication: ANAEMIA
     Route: 042
     Dates: start: 20130521
  33. CLINDAMYCIN [Concomitant]
     Indication: BACTERAEMIA
     Route: 042
     Dates: start: 20130504, end: 20130521
  34. CIPROFLOXACIN [Concomitant]
     Indication: BACTERAEMIA
     Route: 042
     Dates: start: 20130504, end: 20130521
  35. PROTONIX (UNITED STATES) [Concomitant]
     Indication: THROMBOSIS PROPHYLAXIS
     Route: 065
     Dates: start: 20130504
  36. AUGMENTIN [Concomitant]
     Indication: OSTEOMYELITIS
     Route: 065
     Dates: start: 20130521

REACTIONS (1)
  - Respiratory failure [Recovered/Resolved]
